FAERS Safety Report 5570969-0 (Version None)
Quarter: 2007Q4

REPORT INFORMATION
  Report Type: 
  Country: None (occurrence: None)
  Receive Date: 20071221
  Receipt Date: 20071218
  Transmission Date: 20080405
  Serious: Yes (Other)
  Sender: FDA-Public Use
  Company Number: US-BRISTOL-MYERS SQUIBB COMPANY-14018568

PATIENT

DRUGS (2)
  1. CETUXIMAB [Suspect]
  2. CAMPTOSAR [Suspect]

REACTIONS (2)
  - DIARRHOEA [None]
  - WEIGHT DECREASED [None]
